FAERS Safety Report 9900647 (Version 2)
Quarter: 2014Q1

REPORT INFORMATION
  Report Type: Spontaneous
  Country: JP (occurrence: JP)
  Receive Date: 20140217
  Receipt Date: 20140325
  Transmission Date: 20141002
  Serious: Yes (Death, Other)
  Sender: FDA-Public Use
  Company Number: JP-ROCHE-1347056

PATIENT
  Age: 66 Year
  Sex: Male
  Weight: 70 kg

DRUGS (5)
  1. AVASTIN [Suspect]
     Indication: COLON CANCER
     Route: 041
     Dates: start: 20140124, end: 20140124
  2. 5-FU [Suspect]
     Indication: COLON CANCER
     Route: 040
     Dates: start: 20131121
  3. 5-FU [Suspect]
     Indication: COLON CANCER
     Route: 041
     Dates: start: 20131121
  4. LEVOFOLINATE [Concomitant]
     Indication: COLON CANCER
     Route: 041
     Dates: start: 20131121
  5. ELPLAT [Concomitant]
     Indication: COLON CANCER
     Route: 041
     Dates: start: 20131121

REACTIONS (2)
  - Interstitial lung disease [Fatal]
  - Haematemesis [Unknown]
